FAERS Safety Report 21723471 (Version 1)
Quarter: 2022Q4

REPORT INFORMATION
  Report Type: Spontaneous
  Country: US (occurrence: US)
  Receive Date: 20221213
  Receipt Date: 20221213
  Transmission Date: 20230113
  Serious: No
  Sender: FDA-Public Use
  Company Number: US-MYLANLABS-2022M1137243

PATIENT
  Sex: Female

DRUGS (1)
  1. ASTEPRO [Suspect]
     Active Substance: AZELASTINE HYDROCHLORIDE
     Indication: Nasal congestion
     Dosage: UNK
     Route: 045
     Dates: start: 20221007, end: 20221015

REACTIONS (3)
  - Allergic sinusitis [Unknown]
  - Paranasal sinus hypersecretion [Unknown]
  - Condition aggravated [Unknown]
